FAERS Safety Report 11480868 (Version 1)
Quarter: 2015Q3

REPORT INFORMATION
  Report Type: Spontaneous
  Country: GB (occurrence: GB)
  Receive Date: 20150909
  Receipt Date: 20150909
  Transmission Date: 20151125
  Serious: Yes (Life-Threatening, Hospitalization)
  Sender: FDA-Public Use
  Company Number: GB-EISAI MEDICAL RESEARCH-EC-2015-010271

PATIENT
  Age: 73 Year
  Sex: Male
  Weight: 95.25 kg

DRUGS (5)
  1. RIVASTIGMIN [Suspect]
     Active Substance: RIVASTIGMINE
     Indication: DEMENTIA
     Dosage: 3.5 MG
     Route: 062
     Dates: end: 2015
  2. RIVASTIGMIN [Suspect]
     Active Substance: RIVASTIGMINE
     Dosage: DOSE INCREASED
     Route: 062
     Dates: start: 2015
  3. ASPIRIN. [Concomitant]
     Active Substance: ASPIRIN
     Indication: PRODUCT USED FOR UNKNOWN INDICATION
     Dosage: UNKNOWN
  4. ARICEPT [Suspect]
     Active Substance: DONEPEZIL HYDROCHLORIDE
     Dosage: DOSE REDUCED
     Route: 048
     Dates: start: 2015
  5. ARICEPT [Suspect]
     Active Substance: DONEPEZIL HYDROCHLORIDE
     Indication: DEMENTIA
     Route: 048
     Dates: end: 2015

REACTIONS (1)
  - Pneumonia [Recovering/Resolving]

NARRATIVE: CASE EVENT DATE: 2015
